FAERS Safety Report 22389752 (Version 2)
Quarter: 2023Q2

REPORT INFORMATION
  Report Type: Spontaneous
  Country: US (occurrence: US)
  Receive Date: 20230531
  Receipt Date: 20230621
  Transmission Date: 20230721
  Serious: No
  Sender: FDA-Public Use
  Company Number: US-Dermavant-000621

PATIENT
  Age: 48 Year
  Sex: Female

DRUGS (1)
  1. TAPINAROF [Suspect]
     Active Substance: TAPINAROF
     Indication: Psoriasis
     Dosage: AREA OF APPLICATION: SCALP, FOREHEAD, EARS, HAIRLINE ON NECK, STOMACH, RIGHT HAND, LEFT ELBOW, BA...
     Route: 061
     Dates: start: 202302

REACTIONS (4)
  - Application site erythema [Not Recovered/Not Resolved]
  - Headache [Recovered/Resolved]
  - Skin hypertrophy [Not Recovered/Not Resolved]
  - Application site pruritus [Recovered/Resolved]

NARRATIVE: CASE EVENT DATE: 20230201
